FAERS Safety Report 6307595-1 (Version None)
Quarter: 2009Q3

REPORT INFORMATION
  Report Type: 
  Country: None (occurrence: None)
  Receive Date: 20090813
  Receipt Date: 20090807
  Transmission Date: 20100115
  Serious: Yes (Other)
  Sender: FDA-Public Use
  Company Number: US-ASTRAZENECA-2007UW06099

PATIENT
  Age: 17759 Day
  Sex: Female
  Weight: 122.5 kg

DRUGS (4)
  1. SEROQUEL [Suspect]
     Indication: SCHIZOPHRENIA
     Dosage: 400-800 MG
     Route: 048
     Dates: start: 19990101
  2. SEROQUEL [Suspect]
     Indication: DEPRESSION
     Dosage: 400-800 MG
     Route: 048
     Dates: start: 19990101
  3. ZYPREXA [Concomitant]
     Indication: SCHIZOPHRENIA
  4. HALDOL [Concomitant]
     Dates: start: 19900101

REACTIONS (5)
  - BLOOD CHOLESTEROL INCREASED [None]
  - BREAST CANCER [None]
  - FIBROMYALGIA [None]
  - HYPERLIPIDAEMIA [None]
  - TYPE 2 DIABETES MELLITUS [None]
